FAERS Safety Report 9093125 (Version 1)
Quarter: 2013Q1

REPORT INFORMATION
  Report Type: Report from Study
  Country: DE (occurrence: DE)
  Receive Date: 20130201
  Receipt Date: 20130201
  Transmission Date: 20140127
  Serious: Yes (Other)
  Sender: FDA-Public Use
  Company Number: DE-ROCHE-1186251

PATIENT
  Sex: Female
  Weight: 104 kg

DRUGS (3)
  1. TOCILIZUMAB [Suspect]
     Indication: RHEUMATOID ARTHRITIS
     Route: 042
     Dates: start: 20110623, end: 20110623
  2. METHOTREXAT [Concomitant]
     Indication: RHEUMATOID ARTHRITIS
     Route: 048
  3. BELOC-ZOK MITE [Concomitant]
     Indication: HYPERTENSION

REACTIONS (1)
  - Lipid metabolism disorder [Recovering/Resolving]
